FAERS Safety Report 12343649 (Version 2)
Quarter: 2016Q2

REPORT INFORMATION
  Report Type: Spontaneous
  Country: FR (occurrence: FR)
  Receive Date: 20160506
  Receipt Date: 20160628
  Transmission Date: 20160815
  Serious: Yes (Life-Threatening, Hospitalization, Other)
  Sender: FDA-Public Use
  Company Number: FR-ASTRAZENECA-2016SE48714

PATIENT
  Age: 20702 Day
  Sex: Female

DRUGS (16)
  1. SINTROM [Concomitant]
     Active Substance: ACENOCOUMAROL
  2. AMIKLIN [Concomitant]
     Active Substance: AMIKACIN SULFATE
     Indication: ANTIBIOTIC THERAPY
     Route: 042
     Dates: start: 20160413, end: 20160415
  3. DIGOXINE [Concomitant]
     Active Substance: DIGOXIN
  4. MERONEM [Suspect]
     Active Substance: MEROPENEM
     Indication: ANTIBIOTIC THERAPY
     Dosage: 1.5G UNKNOWN
     Route: 042
     Dates: start: 20160417, end: 20160418
  5. RAMIPRIL. [Concomitant]
     Active Substance: RAMIPRIL
  6. LASILIX [Concomitant]
     Active Substance: FUROSEMIDE
  7. TIENAM [Concomitant]
     Active Substance: CILASTATIN SODIUM\IMIPENEM
     Dosage: 1.5G UNKNOWN
  8. MERONEM [Suspect]
     Active Substance: MEROPENEM
     Indication: ANTIBIOTIC THERAPY
     Route: 042
     Dates: start: 20160329, end: 20160329
  9. MERONEM [Suspect]
     Active Substance: MEROPENEM
     Indication: ANTIBIOTIC THERAPY
     Route: 042
     Dates: start: 20160330, end: 20160401
  10. LEVOTHYROX [Concomitant]
     Active Substance: LEVOTHYROXINE
  11. TIENAM [Concomitant]
     Active Substance: CILASTATIN SODIUM\IMIPENEM
     Dosage: 1.5G UNKNOWN
     Dates: start: 20160325, end: 20160329
  12. AMIKLIN [Concomitant]
     Active Substance: AMIKACIN SULFATE
     Indication: ANTIBIOTIC THERAPY
     Route: 042
     Dates: start: 20160326, end: 20160401
  13. CORDARONE [Concomitant]
     Active Substance: AMIODARONE HYDROCHLORIDE
  14. AXEPIM [Suspect]
     Active Substance: CEFEPIME HYDROCHLORIDE
     Indication: ANTIBIOTIC THERAPY
     Route: 041
     Dates: start: 20160418, end: 20160419
  15. ALDACTONE [Concomitant]
     Active Substance: SPIRONOLACTONE
  16. TIENAM [Concomitant]
     Active Substance: CILASTATIN SODIUM\IMIPENEM
     Dosage: 1.5G UNKNOWN
     Dates: start: 20160413, end: 20160415

REACTIONS (7)
  - Confusional state [Recovered/Resolved]
  - Disturbance in attention [Unknown]
  - Respiratory acidosis [Unknown]
  - Hypercapnic coma [Unknown]
  - Toxic encephalopathy [Unknown]
  - Metabolic encephalopathy [Unknown]
  - Hallucination [Recovered/Resolved]

NARRATIVE: CASE EVENT DATE: 20160401
